FAERS Safety Report 9500044 (Version 1)
Quarter: 2013Q3

REPORT INFORMATION
  Report Type: Spontaneous
  Country: US (occurrence: US)
  Receive Date: 20130905
  Receipt Date: 20130905
  Transmission Date: 20140515
  Serious: Yes (Hospitalization)
  Sender: FDA-Public Use
  Company Number: US-ACCORD-019257

PATIENT
  Age: 78 Year
  Sex: Female

DRUGS (1)
  1. GEMCITABINE [Suspect]
     Indication: MYCOSIS FUNGOIDES
     Dosage: 2 DOSES

REACTIONS (2)
  - Capillary leak syndrome [Unknown]
  - Off label use [Unknown]
